FAERS Safety Report 9692655 (Version 3)
Quarter: 2014Q1

REPORT INFORMATION
  Report Type: Spontaneous
  Country: GB (occurrence: GB)
  Receive Date: 20131118
  Receipt Date: 20140127
  Transmission Date: 20141002
  Serious: Yes (Hospitalization)
  Sender: FDA-Public Use
  Company Number: PHFR2013GB006448

PATIENT
  Age: 64 Year
  Sex: Female

DRUGS (7)
  1. CLOZARIL [Suspect]
     Indication: SCHIZOPHRENIA
     Dosage: UNK
     Route: 048
     Dates: start: 20070122
  2. CLOZARIL [Suspect]
     Indication: PSYCHOTIC DISORDER
     Dosage: 50 MG TO 300 MG
     Route: 048
  3. AMISULPRIDE [Concomitant]
     Indication: PSYCHOTIC DISORDER
     Dosage: 800 MG, BID
     Route: 048
  4. THYROXINE [Concomitant]
     Indication: HYPOTHYROIDISM
     Dosage: 150 MG, BID
     Route: 048
  5. VALPROIC ACID [Concomitant]
     Indication: AFFECTIVE DISORDER
     Dosage: 250 MG TO 700 MG DAILY
     Route: 048
  6. SERTRALINE [Concomitant]
     Indication: DEPRESSION
     Dosage: 700 MG, DAILY
     Route: 048
  7. DOCUSATE SODIUM [Concomitant]
     Indication: CONSTIPATION
     Dosage: 1 DF, DAILY
     Route: 048

REACTIONS (8)
  - Chronic obstructive pulmonary disease [Unknown]
  - Infection [Unknown]
  - Hyperammonaemia [Unknown]
  - Delirium [Recovered/Resolved]
  - White blood cell count increased [Unknown]
  - Neutrophil count increased [Unknown]
  - Platelet count increased [Unknown]
  - Differential white blood cell count abnormal [Unknown]
